FAERS Safety Report 6343427-3 (Version None)
Quarter: 2009Q3

REPORT INFORMATION
  Report Type: 
  Country: None (occurrence: None)
  Receive Date: 20090908
  Receipt Date: 20090904
  Transmission Date: 20100115
  Serious: Yes (Death, Hospitalization)
  Sender: FDA-Public Use
  Company Number: PHEH2008US11585

PATIENT
  Sex: Male
  Weight: 78 kg

DRUGS (12)
  1. GLEEVEC [Suspect]
     Indication: CHRONIC MYELOID LEUKAEMIA
     Dosage: 300 MG, QD
     Route: 048
     Dates: start: 20051115, end: 20080823
  2. TENORMIN [Concomitant]
     Dosage: 0.25 MG, BID
     Route: 048
  3. ALTACE [Concomitant]
     Dosage: 2.5 MG, QD
     Route: 048
  4. ISORDIL [Concomitant]
     Dosage: 60 MG, BID
     Route: 048
  5. LASIX [Concomitant]
     Dosage: 80 MG, QD
     Route: 048
  6. NEXIUM [Concomitant]
     Dosage: 40 MG, QD
  7. ASPIRIN [Concomitant]
     Dosage: 81 MG, QD
  8. ELAVIL [Concomitant]
     Dosage: 10 MG, QHS
  9. CASODEX [Concomitant]
     Dosage: 50 MG, QD
  10. METAMUCIL [Concomitant]
     Dosage: UNK
  11. CENTRUM SILVER [Concomitant]
     Dosage: UNK
  12. LYRICA [Concomitant]
     Dosage: 75 MG, TID

REACTIONS (5)
  - ACUTE RESPIRATORY FAILURE [None]
  - BRONCHIAL CARCINOMA [None]
  - LYMPHADENOPATHY [None]
  - PLEURAL EFFUSION [None]
  - PNEUMONIA [None]
